FAERS Safety Report 9047205 (Version 1)
Quarter: 2013Q1

REPORT INFORMATION
  Report Type: Report from Study
  Country: US (occurrence: US)
  Receive Date: 20130130
  Receipt Date: 20130130
  Transmission Date: 20140127
  Serious: No
  Sender: FDA-Public Use
  Company Number: US-ABBOTT-12P-163-0974962-00

PATIENT
  Age: 36 Year
  Sex: Female

DRUGS (4)
  1. HUMIRA [Suspect]
     Indication: CROHN^S DISEASE
     Dates: start: 20120529, end: 201208
  2. HUMIRA [Suspect]
     Route: 058
     Dates: start: 20120828
  3. LILADA [Concomitant]
     Indication: COLITIS
     Dosage: DAILY
     Route: 048
  4. LYRICA [Concomitant]
     Indication: FIBROMYALGIA
     Route: 048

REACTIONS (2)
  - Frequent bowel movements [Recovering/Resolving]
  - Frequent bowel movements [Unknown]
